FAERS Safety Report 7153728-7 (Version None)
Quarter: 2010Q4

REPORT INFORMATION
  Report Type: 
  Country: None (occurrence: None)
  Receive Date: 20101130
  Receipt Date: 20101113
  Transmission Date: 20110411
  Serious: Yes (Other)
  Sender: FDA-Public Use
  Company Number: 022301

PATIENT
  Sex: Male

DRUGS (5)
  1. ISOKET (ISOKET) [Suspect]
     Dosage: (40 MG TID)
     Dates: start: 20100101
  2. KEPINOL [Concomitant]
  3. TORASEMID [Concomitant]
  4. ASPIRIN [Concomitant]
  5. ALLOPURINOL [Concomitant]

REACTIONS (4)
  - DYSPNOEA [None]
  - HEART RATE INCREASED [None]
  - MUSCLE SPASTICITY [None]
  - WRONG TECHNIQUE IN DRUG USAGE PROCESS [None]
